FAERS Safety Report 21526839 (Version 3)
Quarter: 2023Q2

REPORT INFORMATION
  Report Type: Report from Study
  Country: CA (occurrence: CA)
  Receive Date: 20221031
  Receipt Date: 20230529
  Transmission Date: 20230722
  Serious: Yes (Other)
  Sender: FDA-Public Use
  Company Number: CA-TAKEDA-2022TUS066286

PATIENT
  Age: 54 Year
  Sex: Female

DRUGS (3)
  1. VEDOLIZUMAB [Suspect]
     Active Substance: VEDOLIZUMAB
     Indication: Colitis ulcerative
     Dosage: 300 MILLIGRAM
     Route: 042
     Dates: start: 20220427
  2. VEDOLIZUMAB [Suspect]
     Active Substance: VEDOLIZUMAB
     Dosage: 300 MILLIGRAM
     Route: 042
  3. ENTOCORT [Concomitant]
     Active Substance: BUDESONIDE
     Dosage: 115 MILLILITER
     Dates: start: 20220201

REACTIONS (10)
  - Myalgia [Not Recovered/Not Resolved]
  - Arthralgia [Not Recovered/Not Resolved]
  - Bacterial infection [Unknown]
  - Diarrhoea [Unknown]
  - Neck pain [Unknown]
  - Migraine [Unknown]
  - Peripheral swelling [Unknown]
  - Stress [Unknown]
  - Palpitations [Unknown]
  - Groin pain [Recovered/Resolved]

NARRATIVE: CASE EVENT DATE: 20220701
